FAERS Safety Report 12727864 (Version 4)
Quarter: 2019Q3

REPORT INFORMATION
  Report Type: Spontaneous
  Country: AU (occurrence: AU)
  Receive Date: 20160909
  Receipt Date: 20190823
  Transmission Date: 20191004
  Serious: Yes (Death, Hospitalization)
  Sender: FDA-Public Use
  Company Number: AU-ACTELION-A-CH2016-141836

PATIENT
  Age: 33 Year
  Sex: Female

DRUGS (4)
  1. SILDENAFIL. [Concomitant]
     Active Substance: SILDENAFIL
  2. VELETRI [Suspect]
     Active Substance: EPOPROSTENOL
     Indication: PULMONARY ARTERIAL HYPERTENSION
     Dosage: UNK
     Route: 042
     Dates: start: 20141021, end: 20190801
  3. XARELTO [Concomitant]
     Active Substance: RIVAROXABAN
  4. OPSUMIT [Suspect]
     Active Substance: MACITENTAN
     Indication: PULMONARY ARTERIAL HYPERTENSION
     Dosage: 10 MG, QD
     Route: 048
     Dates: start: 20140728, end: 20190801

REACTIONS (9)
  - Catheter management [Unknown]
  - Cerebral haemorrhage [Fatal]
  - Catheter site infection [Unknown]
  - Catheter site pain [Unknown]
  - Catheter site discharge [Unknown]
  - Staphylococcal sepsis [Recovered/Resolved]
  - Skin infection [Unknown]
  - Catheter removal [Unknown]
  - Catheter site swelling [Unknown]

NARRATIVE: CASE EVENT DATE: 20160708
